FAERS Safety Report 15949123 (Version 1)
Quarter: 2019Q1

REPORT INFORMATION
  Report Type: Spontaneous
  Country: US (occurrence: US)
  Receive Date: 20190212
  Receipt Date: 20190212
  Transmission Date: 20190417
  Serious: No
  Sender: FDA-Public Use
  Company Number: None

PATIENT
  Age: 31 Year
  Sex: Female

DRUGS (8)
  1. CEFEPIME [Concomitant]
     Active Substance: CEFEPIME HYDROCHLORIDE
  2. OXYCODONE [Concomitant]
     Active Substance: OXYCODONE
  3. ACYCLOVIR. [Concomitant]
     Active Substance: ACYCLOVIR
  4. ALLOPURINOL. [Concomitant]
     Active Substance: ALLOPURINOL
  5. OLANZAPINE. [Concomitant]
     Active Substance: OLANZAPINE
  6. SEVELAMER HCL [Concomitant]
  7. VORICONAZOLE. [Concomitant]
     Active Substance: VORICONAZOLE
  8. YESCARTA [Suspect]
     Active Substance: AXICABTAGENE CILOLEUCEL
     Indication: B-CELL LYMPHOMA
     Dates: start: 20180920

REACTIONS (10)
  - Nausea [None]
  - Confusional state [None]
  - Pyrexia [None]
  - Pleural effusion [None]
  - Vomiting [None]
  - Tremor [None]
  - Angioedema [None]
  - Sinus tachycardia [None]
  - Mental status changes [None]
  - Hallucination [None]

NARRATIVE: CASE EVENT DATE: 20180921
